FAERS Safety Report 12283501 (Version 1)
Quarter: 2016Q2

REPORT INFORMATION
  Report Type: Spontaneous
  Country: US (occurrence: US)
  Receive Date: 20160419
  Receipt Date: 20160419
  Transmission Date: 20160815
  Serious: No
  Sender: FDA-Public Use
  Company Number: US-BANPHARM-20153783

PATIENT
  Age: 72 Year
  Sex: Male
  Weight: 82.54 kg

DRUGS (3)
  1. NAPROXEN SODIUM 220 MG [Suspect]
     Active Substance: NAPROXEN SODIUM
     Indication: PAIN
     Dosage: 440 MG DF, SINGLE
     Route: 048
     Dates: start: 20150330, end: 20150330
  2. LOSARTAN. [Concomitant]
     Active Substance: LOSARTAN
  3. AMLODIPINE [Concomitant]
     Active Substance: AMLODIPINE BESYLATE

REACTIONS (1)
  - Drug ineffective [Unknown]
